FAERS Safety Report 7699403-1 (Version None)
Quarter: 2011Q3

REPORT INFORMATION
  Report Type: 
  Country: None (occurrence: None)
  Receive Date: 20110819
  Receipt Date: 20110810
  Transmission Date: 20111222
  Serious: Yes (Other)
  Sender: FDA-Public Use
  Company Number: US-ASTRAZENECA-2011SE48296

PATIENT
  Sex: Male

DRUGS (41)
  1. ABILIFY [Concomitant]
     Indication: ANTIDEPRESSANT THERAPY
  2. BUSPAR [Concomitant]
     Indication: POST-TRAUMATIC STRESS DISORDER
  3. NEURONTIN [Concomitant]
     Indication: NEURALGIA
  4. XANAX [Concomitant]
     Indication: PANIC ATTACK
     Dosage: 1 MG 3-4 TIMES A DAY
  5. ADIVAN [Concomitant]
     Indication: PANIC ATTACK
     Dosage: 1 MG 3-4 TIMES A DAY
  6. KALINOPIN [Concomitant]
     Indication: ANXIETY
  7. ZOLAFT [Concomitant]
     Indication: ATTENTION DEFICIT/HYPERACTIVITY DISORDER
  8. PAXIL [Concomitant]
     Indication: MOOD ALTERED
  9. NEURONTIN [Concomitant]
     Indication: CONVULSION
  10. KEPPRA [Concomitant]
     Indication: CONVULSION
  11. ZOLAFT [Concomitant]
     Indication: MOOD ALTERED
  12. PROZAC [Concomitant]
     Indication: ATTENTION DEFICIT/HYPERACTIVITY DISORDER
  13. BUSPAR [Concomitant]
     Indication: MOOD ALTERED
  14. MOTRIN [Concomitant]
     Indication: PAIN
  15. VICIDEN [Concomitant]
     Indication: PAIN
  16. ELIVEL [Concomitant]
     Indication: MOOD ALTERED
     Dosage: 50-100 MG TWO TWICE A DAY
  17. SEROQUEL XR [Suspect]
     Indication: MAJOR DEPRESSION
     Route: 048
  18. VISTROL [Concomitant]
     Indication: ANTIDEPRESSANT THERAPY
  19. ZOLAFT [Concomitant]
     Indication: POST-TRAUMATIC STRESS DISORDER
  20. PAXIL [Concomitant]
     Indication: POST-TRAUMATIC STRESS DISORDER
  21. PERCOSET [Concomitant]
     Indication: PAIN
  22. SEROQUEL XR [Suspect]
     Indication: THINKING ABNORMAL
     Route: 048
  23. 2 DIFFERENT TYPES OF L-DOPHAS [Concomitant]
     Indication: PARKINSON'S DISEASE
  24. XANAX [Concomitant]
     Indication: ANXIETY
     Dosage: 1 MG 3-4 TIMES A DAY
  25. LIBRIUM [Concomitant]
     Indication: NERVOUSNESS
  26. VALUME [Concomitant]
     Indication: MUSCLE SPASMS
  27. DILANTIN [Concomitant]
     Indication: CONVULSION
  28. BUSPAR [Concomitant]
     Indication: ATTENTION DEFICIT/HYPERACTIVITY DISORDER
  29. PAXIL [Concomitant]
     Indication: ATTENTION DEFICIT/HYPERACTIVITY DISORDER
  30. TAGUTEL [Concomitant]
     Indication: CONVULSION
  31. COGENTIN [Concomitant]
     Indication: PANIC ATTACK
  32. LORITAB [Concomitant]
     Indication: PAIN
  33. ELIVEL [Concomitant]
     Indication: POST-TRAUMATIC STRESS DISORDER
     Dosage: 50-100 MG TWO TWICE A DAY
  34. ADIVAN [Concomitant]
     Indication: ANXIETY
     Dosage: 1 MG 3-4 TIMES A DAY
  35. KALINOPIN [Concomitant]
     Indication: PANIC ATTACK
  36. LIBRIUM [Concomitant]
     Indication: ANXIETY
  37. VALUME [Concomitant]
     Indication: NERVOUSNESS
  38. PROZAC [Concomitant]
     Indication: MOOD ALTERED
  39. PROZAC [Concomitant]
     Indication: POST-TRAUMATIC STRESS DISORDER
  40. COGENTIN [Concomitant]
     Indication: ANXIETY
  41. ELIVEL [Concomitant]
     Indication: ATTENTION DEFICIT/HYPERACTIVITY DISORDER
     Dosage: 50-100 MG TWO TWICE A DAY

REACTIONS (18)
  - CONVULSION [None]
  - TARDIVE DYSKINESIA [None]
  - ALCOHOL ABUSE [None]
  - TREMOR [None]
  - INTRACRANIAL ANEURYSM [None]
  - NEUROLEPTIC MALIGNANT SYNDROME [None]
  - POST-TRAUMATIC STRESS DISORDER [None]
  - BIPOLAR DISORDER [None]
  - AUTOIMMUNE DISORDER [None]
  - OCCUPATIONAL PHYSICAL PROBLEM [None]
  - PANIC ATTACK [None]
  - CONFUSIONAL STATE [None]
  - THYROID FUNCTION TEST ABNORMAL [None]
  - RESTLESS LEGS SYNDROME [None]
  - PARKINSON'S DISEASE [None]
  - ANXIETY [None]
  - ATTENTION DEFICIT/HYPERACTIVITY DISORDER [None]
  - INTENTIONAL SELF-INJURY [None]
